FAERS Safety Report 6177832-5 (Version None)
Quarter: 2009Q2

REPORT INFORMATION
  Report Type: 
  Country: None (occurrence: None)
  Receive Date: 20090501
  Receipt Date: 20090501
  Transmission Date: 20091009
  Serious: No
  Sender: FDA-Public Use
  Company Number: None

PATIENT

DRUGS (1)
  1. CHANTIX [Suspect]
     Dates: start: 20060801

REACTIONS (11)
  - COORDINATION ABNORMAL [None]
  - DECREASED APPETITE [None]
  - DISORIENTATION [None]
  - FEELING ABNORMAL [None]
  - LOSS OF CONSCIOUSNESS [None]
  - MENTAL IMPAIRMENT [None]
  - MOBILITY DECREASED [None]
  - QUALITY OF LIFE DECREASED [None]
  - SYNCOPE [None]
  - UNEVALUABLE EVENT [None]
  - WEIGHT DECREASED [None]
